FAERS Safety Report 5867780-X (Version None)
Quarter: 2008Q3

REPORT INFORMATION
  Report Type: 
  Country: None (occurrence: None)
  Receive Date: 20080902
  Receipt Date: 20080820
  Transmission Date: 20090109
  Serious: Yes (Disabling, Other)
  Sender: FDA-Public Use
  Company Number: US-ELI_LILLY_AND_COMPANY-US200808001690

PATIENT
  Sex: Female

DRUGS (7)
  1. EVISTA [Suspect]
     Indication: OSTEOPOROSIS
     Dosage: 60 MG, DAILY (1/D)
  2. SYNTHROID [Concomitant]
     Dosage: 0.075 UG, UNK
  3. PANTOPRAZOLE [Concomitant]
     Dosage: 40 MG, 2/D
  4. ENAPRIL                            /00574901/ [Concomitant]
     Dosage: UNK, 2/D
  5. VITAMIN TAB [Concomitant]
  6. HYDROCHLORZIDE [Concomitant]
     Dosage: 12.5 MG, UNK
  7. VITAMIN D [Concomitant]
     Dosage: 50000 IU, UNK

REACTIONS (14)
  - BALANCE DISORDER [None]
  - DISABILITY [None]
  - DIZZINESS [None]
  - EMOTIONAL DISTRESS [None]
  - FALL [None]
  - GAIT DISTURBANCE [None]
  - HYPERTENSION [None]
  - INNER EAR DISORDER [None]
  - JOINT SWELLING [None]
  - NERVOUS SYSTEM DISORDER [None]
  - OEDEMA PERIPHERAL [None]
  - RIB FRACTURE [None]
  - SYNCOPE VASOVAGAL [None]
  - WALKING AID USER [None]
